FAERS Safety Report 22152726 (Version 6)
Quarter: 2023Q4

REPORT INFORMATION
  Report Type: Report from Study
  Country: US (occurrence: US)
  Receive Date: 20230329
  Receipt Date: 20231103
  Transmission Date: 20240109
  Serious: Yes (Hospitalization, Other)
  Sender: FDA-Public Use
  Company Number: US-TAKEDA-2023TUS020828

PATIENT
  Age: 61 Year
  Sex: Female
  Weight: 56 kg

DRUGS (4)
  1. BRIGATINIB [Suspect]
     Active Substance: BRIGATINIB
     Indication: Lung neoplasm malignant
     Dosage: 90 MILLIGRAM, QD
     Route: 048
     Dates: start: 20230209
  2. BRIGATINIB [Suspect]
     Active Substance: BRIGATINIB
     Dosage: 180 MILLIGRAM, QD
     Route: 048
  3. BRIGATINIB [Suspect]
     Active Substance: BRIGATINIB
     Dosage: 180 MILLIGRAM, QD
     Route: 048
  4. BRIGATINIB [Suspect]
     Active Substance: BRIGATINIB
     Dosage: 180 MILLIGRAM, QD
     Route: 048

REACTIONS (18)
  - Atrial fibrillation [Recovered/Resolved]
  - Heart rate abnormal [Unknown]
  - Central nervous system lesion [Unknown]
  - Productive cough [Unknown]
  - Fatigue [Unknown]
  - Myalgia [Unknown]
  - Abdominal pain upper [Recovered/Resolved]
  - Diarrhoea [Unknown]
  - Photosensitivity reaction [Unknown]
  - Dry skin [Unknown]
  - Urticaria [Unknown]
  - Joint swelling [Unknown]
  - Peripheral swelling [Unknown]
  - Swelling face [Unknown]
  - Pruritus [Unknown]
  - Cardiac disorder [Unknown]
  - Dyspnoea [Unknown]
  - Headache [Unknown]

NARRATIVE: CASE EVENT DATE: 20230401
